FAERS Safety Report 23864186 (Version 5)
Quarter: 2024Q3

REPORT INFORMATION
  Report Type: Spontaneous
  Country: US (occurrence: US)
  Receive Date: 20240516
  Receipt Date: 20240930
  Transmission Date: 20241016
  Serious: No
  Sender: BRISTOL MYERS SQUIBB
  Company Number: US-BRISTOL-MYERS SQUIBB COMPANY-2024-075550

PATIENT
  Age: 91 Year
  Sex: Female
  Weight: 65.77 kg

DRUGS (2)
  1. POMALYST [Suspect]
     Active Substance: POMALIDOMIDE
     Indication: Plasma cell myeloma
     Route: 048
     Dates: start: 20240101
  2. POMALYST [Suspect]
     Active Substance: POMALIDOMIDE
     Indication: Neoplasm malignant

REACTIONS (4)
  - Muscular weakness [Not Recovered/Not Resolved]
  - Balance disorder [Unknown]
  - Dyspnoea [Unknown]
  - Chest pain [Unknown]
